FAERS Safety Report 10101618 (Version 1)
Quarter: 2014Q2

REPORT INFORMATION
  Report Type: Spontaneous
  Country: US (occurrence: None)
  Receive Date: 20140423
  Receipt Date: 20140423
  Transmission Date: 20141212
  Serious: Yes (Other)
  Sender: FDA-Public Use
  Company Number: None

PATIENT
  Age: 70 Year
  Sex: Male
  Weight: 58.97 kg

DRUGS (1)
  1. RAPAFLO [Suspect]
     Indication: BLADDER OUTLET OBSTRUCTION
     Dosage: 1
     Route: 048
     Dates: start: 20140328, end: 20140417

REACTIONS (1)
  - Syncope [None]
